FAERS Safety Report 10156658 (Version 1)
Quarter: 2014Q2

REPORT INFORMATION
  Report Type: Spontaneous
  Country: US (occurrence: None)
  Receive Date: 20140506
  Receipt Date: 20140506
  Transmission Date: 20141212
  Serious: No
  Sender: FDA-Public Use
  Company Number: None

PATIENT
  Age: 24 Year
  Sex: Male
  Weight: 68.04 kg

DRUGS (4)
  1. CITALOPRAM 20 MG [Suspect]
     Indication: DEPRESSION
     Route: 048
     Dates: start: 20131005, end: 20140504
  2. TRAMADOL 50 MG [Suspect]
     Indication: ANXIETY
     Route: 048
     Dates: start: 20140312, end: 20140504
  3. TRAMADOL 50 MG [Suspect]
     Indication: INSOMNIA
     Route: 048
     Dates: start: 20140312, end: 20140504
  4. TRAMADOL 50 MG [Suspect]
     Indication: BACK PAIN
     Route: 048
     Dates: start: 20140312, end: 20140504

REACTIONS (10)
  - Feeling abnormal [None]
  - Confusional state [None]
  - Headache [None]
  - Restlessness [None]
  - Agitation [None]
  - Irritability [None]
  - Hyperhidrosis [None]
  - Muscle twitching [None]
  - Diarrhoea [None]
  - Mydriasis [None]
